FAERS Safety Report 24169009 (Version 1)
Quarter: 2024Q3

REPORT INFORMATION
  Report Type: Spontaneous
  Country: US (occurrence: US)
  Receive Date: 20240802
  Receipt Date: 20240802
  Transmission Date: 20241016
  Serious: No
  Sender: PFIZER
  Company Number: US-PFIZER INC-202400226750

PATIENT
  Age: 57 Year
  Sex: Female
  Weight: 102.06 kg

DRUGS (1)
  1. PAXLOVID [Suspect]
     Active Substance: NIRMATRELVIR\RITONAVIR
     Dosage: UNK

REACTIONS (6)
  - Dysgeusia [Unknown]
  - Sensation of foreign body [Unknown]
  - Abdominal discomfort [Unknown]
  - Insomnia [Unknown]
  - Product dose omission issue [Unknown]
  - Malaise [Unknown]
